FAERS Safety Report 4882405-8 (Version None)
Quarter: 2006Q1

REPORT INFORMATION
  Report Type: 
  Country: None (occurrence: None)
  Receive Date: 20060117
  Receipt Date: 20060106
  Transmission Date: 20060701
  Serious: Yes (Hospitalization, Other)
  Sender: FDA-Public Use
  Company Number: US-AVENTIS-200610286US

PATIENT
  Sex: Female

DRUGS (2)
  1. LANTUS [Suspect]
     Dosage: DOSE: UNK
  2. HUMULIN [Concomitant]
     Dosage: DOSE: UNK

REACTIONS (7)
  - CARDIOVASCULAR DISORDER [None]
  - DIABETIC CARDIOMYOPATHY [None]
  - FATIGUE [None]
  - HYPERGLYCAEMIA [None]
  - MYOCARDIAL INFARCTION [None]
  - PAIN [None]
  - PERIPHERAL VASCULAR DISORDER [None]
